FAERS Safety Report 6521724-6 (Version None)
Quarter: 2009Q4

REPORT INFORMATION
  Report Type: 
  Country: None (occurrence: None)
  Receive Date: 20091230
  Receipt Date: 20091219
  Transmission Date: 20100525
  Serious: Yes (Hospitalization)
  Sender: FDA-Public Use
  Company Number: US-PFIZER INC-2009312186

PATIENT
  Sex: Female
  Weight: 62 kg

DRUGS (11)
  1. EXEMESTANE [Suspect]
     Indication: BREAST CANCER
     Dosage: 25 MG, 1X/DAY
     Route: 048
     Dates: start: 20050613, end: 20090830
  2. ALEVE (CAPLET) [Concomitant]
     Dosage: UNK
  3. VITAMIN D3 [Concomitant]
     Dosage: UNK
  4. VYTORIN [Concomitant]
     Dosage: UNK
  5. MULTIVITAMIN [Concomitant]
     Dosage: UNK
  6. MICRO-K [Concomitant]
     Dosage: UNK
  7. ASPIRIN [Concomitant]
     Dosage: UNK
  8. CALCIUM WITH VITAMIN D [Concomitant]
     Dosage: UNK
  9. HIZAAR [Concomitant]
     Dosage: UNK
  10. FOSAMAX [Concomitant]
     Dosage: UNK
  11. IRON [Concomitant]
     Dosage: UNK

REACTIONS (1)
  - CEREBROVASCULAR ACCIDENT [None]
